FAERS Safety Report 18320422 (Version 1)
Quarter: 2020Q3

REPORT INFORMATION
  Report Type: Report from Study
  Country: IT (occurrence: IT)
  Receive Date: 20200929
  Receipt Date: 20200929
  Transmission Date: 20201103
  Serious: Yes (Other)
  Sender: FDA-Public Use
  Company Number: IT-ACCORD-202868

PATIENT
  Age: 74 Year
  Sex: Female

DRUGS (4)
  1. SUCRALFATE. [Concomitant]
     Active Substance: SUCRALFATE
  2. LYRICA [Concomitant]
     Active Substance: PREGABALIN
  3. PARIET [Concomitant]
     Active Substance: RABEPRAZOLE SODIUM
  4. PACLITAXEL/PACLITAXEL LIPOSOME [Suspect]
     Active Substance: PACLITAXEL
     Indication: BREAST NEOPLASM
     Dosage: LAST DOSE ADMNINISTERED ON 16?SEP?2020
     Route: 042
     Dates: start: 20200818

REACTIONS (2)
  - Chest discomfort [Recovered/Resolved]
  - Dermatitis allergic [Recovered/Resolved]

NARRATIVE: CASE EVENT DATE: 20200902
